FAERS Safety Report 16669282 (Version 1)
Quarter: 2019Q3

REPORT INFORMATION
  Report Type: Spontaneous
  Country: US (occurrence: US)
  Receive Date: 20190805
  Receipt Date: 20190805
  Transmission Date: 20191004
  Serious: Yes (Life-Threatening, Hospitalization, Disabling, Other)
  Sender: FDA-Public Use
  Company Number: None

PATIENT
  Age: 50 Year
  Sex: Male

DRUGS (2)
  1. DUPIXENT [Suspect]
     Active Substance: DUPILUMAB
     Indication: ASTHMA
     Dosage: ?          OTHER STRENGTH:NOT SURE;QUANTITY:1 INJECTION(S);OTHER FREQUENCY:EVERY 15 DAYS;?
     Route: 030
     Dates: start: 20180101, end: 20180930
  2. DUPIXENT [Suspect]
     Active Substance: DUPILUMAB
     Indication: DERMATITIS ATOPIC
     Dosage: ?          OTHER STRENGTH:NOT SURE;QUANTITY:1 INJECTION(S);OTHER FREQUENCY:EVERY 15 DAYS;?
     Route: 030
     Dates: start: 20180101, end: 20180930

REACTIONS (1)
  - Non-Hodgkin^s lymphoma stage II [None]

NARRATIVE: CASE EVENT DATE: 20181208
